FAERS Safety Report 19178513 (Version 3)
Quarter: 2021Q2

REPORT INFORMATION
  Report Type: Spontaneous
  Country: DE (occurrence: DE)
  Receive Date: 20210426
  Receipt Date: 20210603
  Transmission Date: 20210717
  Serious: Yes (Other)
  Sender: FDA-Public Use
  Company Number: DE-AMGEN-DEUSP2021060775

PATIENT
  Sex: Female
  Weight: 67 kg

DRUGS (2)
  1. NEULASTA [Suspect]
     Active Substance: PEGFILGRASTIM
     Indication: PRODUCT USED FOR UNKNOWN INDICATION
     Dosage: UNK
     Route: 065
     Dates: start: 20090813, end: 20091203
  2. NEUPOGEN [Suspect]
     Active Substance: FILGRASTIM
     Indication: PRODUCT USED FOR UNKNOWN INDICATION
     Dosage: 300 UNK
     Route: 065
     Dates: start: 20090812, end: 20091210

REACTIONS (3)
  - Autoimmune disorder [Not Recovered/Not Resolved]
  - Sensory disturbance [Not Recovered/Not Resolved]
  - Granuloma annulare [Not Recovered/Not Resolved]
